FAERS Safety Report 15405272 (Version 1)
Quarter: 2018Q3

REPORT INFORMATION
  Report Type: Spontaneous
  Country: FR (occurrence: FR)
  Receive Date: 20180920
  Receipt Date: 20180920
  Transmission Date: 20181010
  Serious: Yes (Hospitalization)
  Sender: FDA-Public Use
  Company Number: FR-SUN PHARMACEUTICAL INDUSTRIES LTD-2018RR-184923

PATIENT
  Age: 55 Year
  Sex: Male

DRUGS (5)
  1. LAROXYL [Concomitant]
     Active Substance: AMITRIPTYLINE HYDROCHLORIDE
     Indication: PRODUCT USED FOR UNKNOWN INDICATION
     Dosage: ON EVENING
     Route: 048
  2. BACLOFEN. [Concomitant]
     Active Substance: BACLOFEN
     Indication: PRODUCT USED FOR UNKNOWN INDICATION
     Dosage: DOSE:2 UNIT(S) (), QD
     Route: 048
  3. BACTRIM [Suspect]
     Active Substance: SULFAMETHOXAZOLE\TRIMETHOPRIM
     Indication: URETHRITIS
     Dosage: DOSE:1 UNIT(S)
     Route: 048
     Dates: start: 20120511, end: 20120523
  4. BIPROFENID [Suspect]
     Active Substance: KETOPROFEN
     Indication: NECK PAIN
     Dosage: ()
     Route: 048
     Dates: end: 20120523
  5. PARACETAMOL [Suspect]
     Active Substance: ACETAMINOPHEN
     Indication: NECK PAIN
     Dosage: ()
     Route: 048
     Dates: end: 20120523

REACTIONS (2)
  - Hepatocellular injury [Recovering/Resolving]
  - Rash [Recovered/Resolved]

NARRATIVE: CASE EVENT DATE: 20120527
